FAERS Safety Report 20584603 (Version 1)
Quarter: 2022Q1

REPORT INFORMATION
  Report Type: Spontaneous
  Country: US (occurrence: US)
  Receive Date: 20220311
  Receipt Date: 20220311
  Transmission Date: 20220424
  Serious: No
  Sender: FDA-Public Use
  Company Number: US-PFIZER INC-2021614396

PATIENT
  Age: 51 Year
  Sex: Female
  Weight: 88.45 kg

DRUGS (2)
  1. PREGABALIN [Suspect]
     Active Substance: PREGABALIN
     Indication: Fibromyalgia
     Dosage: 100 MG, 3X/DAY
  2. PREGABALIN [Suspect]
     Active Substance: PREGABALIN
     Indication: Sciatica

REACTIONS (2)
  - Epigastric discomfort [Unknown]
  - Malaise [Unknown]
